FAERS Safety Report 20839333 (Version 1)
Quarter: 2022Q2

REPORT INFORMATION
  Report Type: Report from Study
  Country: NL (occurrence: None)
  Receive Date: 20220517
  Receipt Date: 20220517
  Transmission Date: 20220721
  Serious: Yes (Hospitalization)
  Sender: FDA-Public Use
  Company Number: NL-Merck Healthcare KGaA-9320969

PATIENT
  Age: 57 Year
  Sex: Female
  Weight: 65 kg

DRUGS (2)
  1. CLADRIBINE [Suspect]
     Active Substance: CLADRIBINE
     Indication: Product used for unknown indication
     Dosage: YEAR ONE FIRST WEEK
     Dates: start: 20220131, end: 20220205
  2. CLADRIBINE [Suspect]
     Active Substance: CLADRIBINE
     Dosage: YEAR ONE SECOND WEEK
     Dates: start: 20220302, end: 20220307

REACTIONS (2)
  - Respiratory tract infection [Recovered/Resolved]
  - Multiple sclerosis pseudo relapse [Recovered/Resolved]

NARRATIVE: CASE EVENT DATE: 20220419
